FAERS Safety Report 9960731 (Version 1)
Quarter: 2014Q1

REPORT INFORMATION
  Report Type: Spontaneous
  Country: US (occurrence: None)
  Receive Date: 20140304
  Receipt Date: 20140304
  Transmission Date: 20141002
  Serious: No
  Sender: FDA-Public Use
  Company Number: None

PATIENT
  Sex: 0

DRUGS (1)
  1. RISPERDAL [Suspect]

REACTIONS (19)
  - Movement disorder [None]
  - Hypertonic bladder [None]
  - Muscle spasms [None]
  - Dysphagia [None]
  - Stress [None]
  - Confusional state [None]
  - Pain [None]
  - Back pain [None]
  - Pain in extremity [None]
  - Pain in extremity [None]
  - Menorrhagia [None]
  - Breast pain [None]
  - Salivary hypersecretion [None]
  - Musculoskeletal stiffness [None]
  - Musculoskeletal stiffness [None]
  - Amnesia [None]
  - Heart rate increased [None]
  - Hyperhidrosis [None]
  - Dizziness [None]
